FAERS Safety Report 7765806-X (Version None)
Quarter: 2011Q3

REPORT INFORMATION
  Report Type: 
  Country: None (occurrence: None)
  Receive Date: 20110921
  Receipt Date: 20110907
  Transmission Date: 20111222
  Serious: Yes (Disabling)
  Sender: FDA-Public Use
  Company Number: NO-BAYER-2011-082297

PATIENT
  Age: 56 Year
  Sex: Female

DRUGS (2)
  1. CLOTRIMAZOLE [Suspect]
     Indication: ANTIBIOTIC PROPHYLAXIS
     Dosage: CREAM IN EAR AFTER SURGERY FOR HEARING IMPAIRMENT
     Route: 001
     Dates: start: 20110222
  2. TERRACORTRIL MED POLYMYXIN B [Concomitant]
     Indication: ANTIBIOTIC PROPHYLAXIS
     Dosage: DROPS ON GELFOAM BANDAGE IN  EAR
     Route: 001
     Dates: start: 20110222

REACTIONS (2)
  - DEAFNESS NEUROSENSORY [None]
  - LABYRINTHITIS [None]
